FAERS Safety Report 6641458-7 (Version None)
Quarter: 2010Q1

REPORT INFORMATION
  Report Type: 
  Country: None (occurrence: None)
  Receive Date: 20100317
  Receipt Date: 20100317
  Transmission Date: 20100710
  Serious: Yes (Death)
  Sender: FDA-Public Use
  Company Number: None

PATIENT
  Sex: Male

DRUGS (1)
  1. XELODA [Suspect]
     Indication: PANCREATIC CARCINOMA
     Dosage: 500 MG 2XDAILYX22 DAYS ORAL
     Route: 048
     Dates: start: 20090113, end: 20100310

REACTIONS (1)
  - DEATH [None]
